FAERS Safety Report 9406033 (Version 2)
Quarter: 2013Q3

REPORT INFORMATION
  Report Type: Spontaneous
  Country: US (occurrence: US)
  Receive Date: 20130717
  Receipt Date: 20130813
  Transmission Date: 20140515
  Serious: No
  Sender: FDA-Public Use
  Company Number: US-009507513-1307USA008389

PATIENT
  Age: 90 Year
  Sex: Male
  Weight: 63.49 kg

DRUGS (6)
  1. MIRALAX [Suspect]
     Indication: INFREQUENT BOWEL MOVEMENTS
     Dosage: 17 G, QD
     Route: 048
     Dates: start: 2000, end: 2013
  2. MIRALAX [Suspect]
     Indication: MEDICAL OBSERVATION
  3. COUMADIN [Concomitant]
     Indication: THROMBOSIS
     Dosage: UNK, UNKNOWN
  4. LUNESTA [Concomitant]
     Indication: SLEEP DISORDER THERAPY
     Dosage: UNK, UNKNOWN
  5. SYNTHROID [Concomitant]
     Indication: THYROID DISORDER
     Dosage: UNK, UNKNOWN
  6. ASCORBIC ACID [Concomitant]
     Indication: PRODUCT USED FOR UNKNOWN INDICATION
     Dosage: UNK, UNKNOWN

REACTIONS (2)
  - Abdominal pain upper [Unknown]
  - Product solubility abnormal [Unknown]
